FAERS Safety Report 13466551 (Version 2)
Quarter: 2017Q2

REPORT INFORMATION
  Report Type: Other
  Country: JP (occurrence: JP)
  Receive Date: 20170421
  Receipt Date: 20170525
  Transmission Date: 20170830
  Serious: Yes (Hospitalization)
  Sender: FDA-Public Use
  Company Number: JP-EMD SERONO-8154048

PATIENT
  Age: 32 Year
  Sex: Female

DRUGS (1)
  1. SEROPHENE [Suspect]
     Active Substance: CLOMIPHENE CITRATE
     Indication: OVULATION INDUCTION
     Dosage: FROM THE FIFTH DAY OF EACH MENSTRUATION FOR 5 DAYS
     Route: 048

REACTIONS (1)
  - Hereditary angioedema [Recovered/Resolved]
